FAERS Safety Report 4412024-9 (Version None)
Quarter: 2004Q2

REPORT INFORMATION
  Report Type: 
  Country: None (occurrence: None)
  Receive Date: 20040630
  Receipt Date: 20040329
  Transmission Date: 20050107
  Serious: No
  Sender: FDA-Public Use
  Company Number: 04P-163-0255001-00

PATIENT
  Sex: Female
  Weight: 81.6475 kg

DRUGS (7)
  1. HUMIRA [Suspect]
     Indication: PSORIATIC ARTHROPATHY
     Dosage: 40 MG, 1 IN 1 -2 WK, SUBCUTANEOUS
     Route: 058
     Dates: start: 20030101, end: 20040201
  2. HUMIRA [Suspect]
     Indication: PSORIATIC ARTHROPATHY
     Dosage: 40 MG, 1 IN 1 -2 WK, SUBCUTANEOUS
     Route: 058
     Dates: start: 20040201
  3. METHOTREXATE [Concomitant]
  4. BUCINDOLOL HYDROCHLORIDE [Concomitant]
  5. GABAPENTIN [Concomitant]
  6. FOLIC ACID [Concomitant]
  7. VENLAFAXINE HCL [Concomitant]

REACTIONS (6)
  - ASTHENIA [None]
  - BRONCHITIS [None]
  - CONDITION AGGRAVATED [None]
  - CONTUSION [None]
  - DIZZINESS [None]
  - PAIN IN EXTREMITY [None]
